FAERS Safety Report 22142350 (Version 1)
Quarter: 2023Q1

REPORT INFORMATION
  Report Type: Spontaneous
  Country: PT (occurrence: PT)
  Receive Date: 20230327
  Receipt Date: 20230327
  Transmission Date: 20230418
  Serious: Yes (Other)
  Sender: FDA-Public Use
  Company Number: None

PATIENT
  Age: 2 Year
  Sex: Female
  Weight: 15 kg

DRUGS (1)
  1. CELESTONE [Suspect]
     Active Substance: BETAMETHASONE
     Dosage: 40 DROPS
     Route: 048
     Dates: start: 20230303, end: 20230303

REACTIONS (2)
  - Pallor [Unknown]
  - Fatigue [Unknown]

NARRATIVE: CASE EVENT DATE: 20230303
